FAERS Safety Report 4339524-4 (Version None)
Quarter: 2004Q2

REPORT INFORMATION
  Report Type: 
  Country: None (occurrence: None)
  Receive Date: 20040412
  Receipt Date: 20040401
  Transmission Date: 20050107
  Serious: Yes (Hospitalization)
  Sender: FDA-Public Use
  Company Number: 200410918GDS

PATIENT
  Age: 31 Year
  Sex: Female

DRUGS (3)
  1. NIFEDIPINE [Suspect]
     Indication: TOCOLYSIS
     Dosage: 20 MG, TID, ORAL
     Route: 048
  2. BETAMETHASONE [Suspect]
     Indication: TOCOLYSIS
  3. AMOXICILLIN [Concomitant]

REACTIONS (16)
  - ANION GAP INCREASED [None]
  - BLOOD UREA DECREASED [None]
  - BREATH SOUNDS DECREASED [None]
  - DYSPNOEA [None]
  - FIBRIN D DIMER INCREASED [None]
  - HEART RATE INCREASED [None]
  - HYPOXIA [None]
  - METABOLIC ACIDOSIS [None]
  - OEDEMA PERIPHERAL [None]
  - PREMATURE BABY [None]
  - PREMATURE LABOUR [None]
  - PULMONARY EMBOLISM [None]
  - RESPIRATORY ALKALOSIS [None]
  - RESPIRATORY DISTRESS [None]
  - URINE KETONE BODY PRESENT [None]
  - VENOUS PRESSURE JUGULAR INCREASED [None]
